FAERS Safety Report 5029578-4 (Version None)
Quarter: 2006Q2

REPORT INFORMATION
  Report Type: 
  Country: None (occurrence: None)
  Receive Date: 20060616
  Receipt Date: 20060616
  Transmission Date: 20061013
  Serious: No
  Sender: FDA-Public Use
  Company Number: None

PATIENT
  Age: 55 Year
  Sex: Male
  Weight: 85.1 kg

DRUGS (7)
  1. SORAFENIB [Suspect]
     Indication: RENAL CELL CARCINOMA STAGE UNSPECIFIED
     Dosage: 400 MG PO BID
     Route: 048
     Dates: start: 20060202, end: 20060502
  2. HYDROCODONE 10/ACETAMINOPHEN [Concomitant]
  3. DOCUSATE NA [Concomitant]
  4. HYDROCODONE 5/ACETAMINOPHEN [Concomitant]
  5. OMEPRAZOLE [Concomitant]
  6. ALLOPURINOL [Concomitant]
  7. HYDROCHLOROTHIAZIDE [Concomitant]

REACTIONS (2)
  - RASH [None]
  - SKIN LESION [None]
